FAERS Safety Report 8878071 (Version 1)
Quarter: 2012Q4

REPORT INFORMATION
  Report Type: 
  Country: US (occurrence: US)
  Receive Date: 20121030
  Receipt Date: 20121030
  Transmission Date: 20130627
  Serious: Yes (Death)
  Sender: FDA-Public Use
  Company Number: US-UCBSA-069632

PATIENT
  Age: 35 Year
  Sex: Male

DRUGS (3)
  1. VIMPAT [Suspect]
     Dosage: TITRATED TO 200 MG
     Dates: start: 20111017
  2. VIMPAT [Suspect]
     Dates: end: 20121019
  3. OLANZAPINE [Concomitant]
     Dosage: EVERY NIGHT AT BEDTIME

REACTIONS (1)
  - Sudden unexplained death in epilepsy [Fatal]
